FAERS Safety Report 14572378 (Version 6)
Quarter: 2018Q3

REPORT INFORMATION
  Report Type: Report from Study
  Country: FR (occurrence: FR)
  Receive Date: 20180226
  Receipt Date: 20180702
  Transmission Date: 20181010
  Serious: Yes (Other)
  Sender: FDA-Public Use
  Company Number: FR-PFIZER INC-2018072373

PATIENT
  Age: 32 Year
  Sex: Male

DRUGS (3)
  1. VINCRISTINE SULFATE. [Suspect]
     Active Substance: VINCRISTINE SULFATE
     Indication: OLIGODENDROGLIOMA
     Dosage: 1.4 MG/M2, CYCLIC (DAY 8 AND 29)(NOT EXCEEDING DOSE OF 2 MG)
     Dates: start: 201307
  2. PROCARBAZINE [Suspect]
     Active Substance: PROCARBAZINE
     Indication: OLIGODENDROGLIOMA
     Dosage: 75 MG/M2, CYCLIC (ON DAY 8?21)
     Dates: start: 201307
  3. CCNU [Suspect]
     Active Substance: LOMUSTINE
     Indication: OLIGODENDROGLIOMA
     Dosage: 130 MG/M2, CYCLIC (ON DAY 1)
     Dates: start: 201307

REACTIONS (1)
  - Neuropathy peripheral [Recovering/Resolving]
